FAERS Safety Report 4977466-1 (Version None)
Quarter: 2006Q2

REPORT INFORMATION
  Report Type: 
  Country: None (occurrence: None)
  Receive Date: 20060413
  Receipt Date: 20060404
  Transmission Date: 20061013
  Serious: Yes (Hospitalization, Other)
  Sender: FDA-Public Use
  Company Number: 2006040219

PATIENT
  Sex: Female

DRUGS (3)
  1. EPELIN  KAPSEALS (PHENYTOIN SODIUM) [Suspect]
     Indication: CONVULSION
     Dosage: 400 MG (200 MG, 2 IN 1 D), ORAL
     Route: 048
     Dates: start: 19760101
  2. HIDANTAL (PHENYTOIN) [Suspect]
     Indication: CONVULSION
     Dosage: 400 MG (200 MG, 2 IN 1 D), ORAL
     Route: 048
     Dates: start: 20030101, end: 20030101
  3. VALPAKINE (VALPROIC ACID) [Concomitant]

REACTIONS (6)
  - BALANCE DISORDER [None]
  - DRUG DEPENDENCE [None]
  - DYSPNOEA [None]
  - FORMICATION [None]
  - MALAISE [None]
  - SENSORY DISTURBANCE [None]
